FAERS Safety Report 18782426 (Version 1)
Quarter: 2021Q1

REPORT INFORMATION
  Report Type: Spontaneous
  Country: US (occurrence: US)
  Receive Date: 20210125
  Receipt Date: 20210125
  Transmission Date: 20210419
  Serious: No
  Sender: FDA-Public Use
  Company Number: US-ALLERGAN-2044665US

PATIENT
  Sex: Female

DRUGS (2)
  1. FML [Concomitant]
     Active Substance: FLUOROMETHOLONE
  2. RESTASIS [Suspect]
     Active Substance: CYCLOSPORINE
     Indication: PRODUCT USED FOR UNKNOWN INDICATION

REACTIONS (6)
  - Lacrimation increased [Unknown]
  - Corneal disorder [Unknown]
  - Visual impairment [Unknown]
  - Eye irritation [Unknown]
  - Photophobia [Unknown]
  - Rhinorrhoea [Unknown]
